FAERS Safety Report 14200281 (Version 1)
Quarter: 2017Q4

REPORT INFORMATION
  Report Type: Spontaneous
  Country: AR (occurrence: AR)
  Receive Date: 20171117
  Receipt Date: 20171117
  Transmission Date: 20180321
  Serious: Yes (Other)
  Sender: FDA-Public Use
  Company Number: AR-PFIZER INC-2017491834

PATIENT
  Age: 72 Year
  Sex: Male

DRUGS (1)
  1. INLYTA [Suspect]
     Active Substance: AXITINIB
     Indication: RENAL CANCER
     Dosage: 5 MG, UNK
     Dates: start: 20170408, end: 201710

REACTIONS (1)
  - Visual impairment [Recovering/Resolving]

NARRATIVE: CASE EVENT DATE: 20171107
